FAERS Safety Report 8578551-8 (Version None)
Quarter: 2012Q3

REPORT INFORMATION
  Report Type: 
  Country: None (occurrence: None)
  Receive Date: 20120808
  Receipt Date: 20120803
  Transmission Date: 20120928
  Serious: Yes (Other)
  Sender: FDA-Public Use
  Company Number: JP-BAYER-2012-062743

PATIENT
  Age: 24 Year
  Sex: Male

DRUGS (10)
  1. IBRUPROFEN [Concomitant]
     Indication: ACUTE TONSILLITIS
     Dosage: DAILY DOSE 600 MG
     Route: 048
     Dates: start: 20110620
  2. AVELOX [Suspect]
     Indication: ACUTE TONSILLITIS
     Dosage: DAILY DOSE 400 MG
     Route: 048
     Dates: start: 20110620, end: 20110601
  3. CELESTAMINE TAB [Concomitant]
     Indication: ACUTE TONSILLITIS
     Dosage: DAILY DOSE 1 DF
     Route: 048
     Dates: start: 20110620
  4. AZUNOL [SODIUM GUALENATE] [Concomitant]
     Indication: PHARYNGITIS
  5. AZUNOL [SODIUM GUALENATE] [Concomitant]
     Indication: ACUTE TONSILLITIS
     Dosage: UNK
     Route: 002
     Dates: start: 20110622
  6. AVELOX [Suspect]
     Indication: PHARYNGITIS
  7. PROTECADIN [Concomitant]
     Indication: ACUTE TONSILLITIS
     Dosage: DAILY DOSE 10 MG
     Route: 048
     Dates: start: 20110620
  8. IBRUPROFEN [Concomitant]
     Indication: PHARYNGITIS
  9. CELESTAMINE TAB [Concomitant]
     Indication: PHARYNGITIS
  10. PROTECADIN [Concomitant]
     Indication: PHARYNGITIS

REACTIONS (1)
  - OCULOMUCOCUTANEOUS SYNDROME [None]
